FAERS Safety Report 6549227-3 (Version None)
Quarter: 2010Q1

REPORT INFORMATION
  Report Type: 
  Country: None (occurrence: None)
  Receive Date: 20100125
  Receipt Date: 20100121
  Transmission Date: 20100710
  Serious: Yes (Life-Threatening)
  Sender: FDA-Public Use
  Company Number: US-ASTRAZENECA-2010SE02727

PATIENT
  Age: 26 Year
  Sex: Male

DRUGS (3)
  1. PROPOFOL [Suspect]
     Indication: ANALGESIC THERAPY
     Dosage: THE LARGEST DOSE WAS 75 MCG/KG/MIN
     Route: 042
  2. PROPOFOL [Suspect]
     Dosage: 40 MCG/KG/MIN
     Route: 042
  3. FENTANYL [Concomitant]
     Indication: ANALGESIC THERAPY
     Route: 042

REACTIONS (1)
  - PROPOFOL INFUSION SYNDROME [None]
